FAERS Safety Report 7477486-1 (Version None)
Quarter: 2011Q2

REPORT INFORMATION
  Report Type: 
  Country: None (occurrence: None)
  Receive Date: 20110513
  Receipt Date: 20110504
  Transmission Date: 20111010
  Serious: Yes (Other)
  Sender: FDA-Public Use
  Company Number: US-BIOGENIDEC-2011BI013425

PATIENT
  Age: 57 Year
  Sex: Female

DRUGS (1)
  1. AVONEX [Suspect]
     Indication: MULTIPLE SCLEROSIS
     Route: 030
     Dates: start: 20100613

REACTIONS (5)
  - COORDINATION ABNORMAL [None]
  - CONFUSIONAL STATE [None]
  - EYE PAIN [None]
  - CONVULSION [None]
  - MEMORY IMPAIRMENT [None]
